FAERS Safety Report 13530197 (Version 1)
Quarter: 2017Q2

REPORT INFORMATION
  Report Type: Spontaneous
  Country: US (occurrence: US)
  Receive Date: 20170509
  Receipt Date: 20170509
  Transmission Date: 20170830
  Serious: No
  Sender: FDA-Public Use
  Company Number: US-UCBSA-2016025940

PATIENT
  Age: 74 Year
  Sex: Female

DRUGS (3)
  1. NEUPRO [Suspect]
     Active Substance: ROTIGOTINE
     Dosage: 4 MG DAILY
     Dates: start: 2016
  2. NEUPRO [Suspect]
     Active Substance: ROTIGOTINE
     Dosage: 6 MG DAILY
     Dates: start: 201601, end: 2016
  3. NEUPRO [Suspect]
     Active Substance: ROTIGOTINE
     Indication: PARKINSON^S DISEASE
     Dosage: 4 MG DAILY
     Dates: start: 201507

REACTIONS (5)
  - Nausea [Not Recovered/Not Resolved]
  - Feeling abnormal [Recovered/Resolved]
  - Gait disturbance [Not Recovered/Not Resolved]
  - Weight decreased [Not Recovered/Not Resolved]
  - Product packaging issue [Unknown]

NARRATIVE: CASE EVENT DATE: 201601
